FAERS Safety Report 5269228-5 (Version None)
Quarter: 2007Q1

REPORT INFORMATION
  Report Type: 
  Country: None (occurrence: None)
  Receive Date: 20070319
  Receipt Date: 20070307
  Transmission Date: 20070707
  Serious: Yes (Hospitalization)
  Sender: FDA-Public Use
  Company Number: GB-PFIZER INC-2007018390

PATIENT
  Age: 88 Year
  Sex: Female

DRUGS (2)
  1. GABAPENTIN [Suspect]
  2. LYRICA [Suspect]
     Route: 048

REACTIONS (2)
  - CONFUSIONAL STATE [None]
  - DISTRACTIBILITY [None]
